FAERS Safety Report 7417582-8 (Version None)
Quarter: 2011Q2

REPORT INFORMATION
  Report Type: 
  Country: None (occurrence: None)
  Receive Date: 20110412
  Receipt Date: 20110412
  Transmission Date: 20111010
  Serious: Yes (Hospitalization)
  Sender: FDA-Public Use
  Company Number: None

PATIENT
  Age: 85 Year
  Sex: Female
  Weight: 81.6475 kg

DRUGS (2)
  1. XELODA [Suspect]
     Indication: NEOPLASM MALIGNANT
     Dosage: 3 - 7 - 10 A DAY 14 DAYS SKIP 7 DAYS
     Dates: start: 20110228, end: 20110320
  2. XELODA [Suspect]
     Indication: NEOPLASM MALIGNANT
     Dosage: 3 - 7 - 10 A DAY 14 DAYS SKIP 7 DAYS
     Dates: start: 20110207, end: 20110220

REACTIONS (2)
  - PAIN IN EXTREMITY [None]
  - PERIPHERAL COLDNESS [None]
